APPROVED DRUG PRODUCT: NYSTATIN
Active Ingredient: NYSTATIN
Strength: 100,000 UNITS/ML
Dosage Form/Route: SUSPENSION;ORAL
Application: A065148 | Product #001 | TE Code: AA
Applicant: GENUS LIFESCIENCES INC
Approved: Jun 28, 2005 | RLD: No | RS: No | Type: RX